FAERS Safety Report 16920709 (Version 1)
Quarter: 2019Q4

REPORT INFORMATION
  Report Type: Spontaneous
  Country: US (occurrence: US)
  Receive Date: 20190823
  Receipt Date: 20190823
  Transmission Date: 20200122
  Serious: No
  Sender: FDA-Public Use
  Company Number: None

PATIENT
  Sex: Female

DRUGS (2)
  1. MARLISSA [Suspect]
     Active Substance: ETHINYL ESTRADIOL\LEVONORGESTREL
  2. NORETHINDRONE ACETATE. [Suspect]
     Active Substance: NORETHINDRONE ACETATE

REACTIONS (14)
  - Dyspnoea [None]
  - Viral infection [None]
  - Malaise [None]
  - Product dispensing error [None]
  - Metrorrhagia [None]
  - Abdominal pain upper [None]
  - Menorrhagia [None]
  - Migraine [None]
  - Anxiety [None]
  - Back pain [None]
  - Acne [None]
  - Headache [None]
  - Impaired work ability [None]
  - Wrong product administered [None]
